FAERS Safety Report 8031461-7 (Version None)
Quarter: 2011Q4

REPORT INFORMATION
  Report Type: 
  Country: None (occurrence: None)
  Receive Date: 20111201
  Receipt Date: 20110909
  Transmission Date: 20120403
  Serious: Yes (Hospitalization)
  Sender: FDA-Public Use
  Company Number: 20110824CINRY2217

PATIENT
  Age: 40 Year
  Sex: Female

DRUGS (3)
  1. KALBITOR [Concomitant]
  2. CINRYZE [Suspect]
     Indication: PROPHYLAXIS
     Dosage: UNKNOWN (EVERY 3 TO 4 DAYS), INTRAVENOUS
     Route: 042
  3. CINRYZE [Suspect]
     Indication: HEREDITARY ANGIOEDEMA
     Dosage: UNKNOWN (EVERY 3 TO 4 DAYS), INTRAVENOUS
     Route: 042

REACTIONS (5)
  - GASTRIC CYST [None]
  - ABDOMINAL PAIN UPPER [None]
  - HEREDITARY ANGIOEDEMA [None]
  - BRADYCARDIA [None]
  - ABDOMINAL MASS [None]
